FAERS Safety Report 23151125 (Version 2)
Quarter: 2023Q4

REPORT INFORMATION
  Report Type: Report from Study
  Country: US (occurrence: US)
  Receive Date: 20231106
  Receipt Date: 20231108
  Transmission Date: 20240110
  Serious: Yes (Death, Hospitalization)
  Sender: FDA-Public Use
  Company Number: US-ABBVIE-5426028

PATIENT
  Age: 74 Year
  Sex: Male

DRUGS (1)
  1. VENCLEXTA [Suspect]
     Active Substance: VENETOCLAX
     Indication: Chronic lymphocytic leukaemia
     Dosage: TAKE 2 TABLET(S) BY MOUTH 1 TIMES DAILY, FORM STRENGTH: 100 MG
     Route: 048
     Dates: start: 202301, end: 20230831

REACTIONS (2)
  - Lung carcinoma cell type unspecified stage IV [Fatal]
  - Respiratory distress [Unknown]

NARRATIVE: CASE EVENT DATE: 20230830
